FAERS Safety Report 8184103 (Version 4)
Quarter: 2012Q4

REPORT INFORMATION
  Report Type: Report from Study
  Country: BR (occurrence: BR)
  Receive Date: 20111017
  Receipt Date: 20121122
  Transmission Date: 20130627
  Serious: Yes (Other)
  Sender: FDA-Public Use
  Company Number: BR-ROCHE-1003733

PATIENT
  Age: 58 Year
  Sex: Female
  Weight: 72 kg

DRUGS (22)
  1. TOCILIZUMAB [Suspect]
     Indication: PRODUCT USED FOR UNKNOWN INDICATION
     Dosage: Date os last dose administered : 15/Oct/2012
     Route: 042
     Dates: start: 20101101
  2. TOCILIZUMAB [Suspect]
     Route: 042
     Dates: start: 20110104
  3. TOCILIZUMAB [Suspect]
     Route: 042
     Dates: start: 20110204
  4. TOCILIZUMAB [Suspect]
     Route: 042
     Dates: start: 20110301
  5. TOCILIZUMAB [Suspect]
     Route: 042
     Dates: start: 20110404
  6. TOCILIZUMAB [Suspect]
     Route: 042
     Dates: start: 20110503
  7. TOCILIZUMAB [Suspect]
     Route: 042
     Dates: start: 20110601
  8. TOCILIZUMAB [Suspect]
     Route: 042
     Dates: start: 20110701
  9. TOCILIZUMAB [Suspect]
     Route: 042
     Dates: start: 20110801
  10. TOCILIZUMAB [Suspect]
     Route: 042
     Dates: start: 20110901
  11. TOCILIZUMAB [Suspect]
     Route: 042
     Dates: start: 20111027
  12. TOCILIZUMAB [Suspect]
     Route: 042
     Dates: start: 20111127
  13. TOCILIZUMAB [Suspect]
     Route: 042
     Dates: start: 20111230
  14. TOCILIZUMAB [Suspect]
     Route: 042
     Dates: start: 20120130
  15. TOCILIZUMAB [Suspect]
     Route: 042
     Dates: start: 20120201
  16. TOCILIZUMAB [Suspect]
     Route: 042
     Dates: start: 20120312
  17. TOCILIZUMAB [Suspect]
     Route: 042
     Dates: start: 20120416
  18. METICORTEN [Concomitant]
     Route: 065
  19. CORTICORTEN [Concomitant]
     Route: 065
  20. METHOTREXATE [Concomitant]
     Route: 065
  21. ASPIRIN [Concomitant]
     Route: 065
  22. OSTEONUTRI [Concomitant]

REACTIONS (5)
  - Coronary artery occlusion [Not Recovered/Not Resolved]
  - Blood cholesterol increased [Unknown]
  - Joint swelling [Recovered/Resolved]
  - Malaise [Unknown]
  - Cough [Recovering/Resolving]
